FAERS Safety Report 5575595-5 (Version None)
Quarter: 2007Q4

REPORT INFORMATION
  Report Type: 
  Country: None (occurrence: None)
  Receive Date: 20071226
  Receipt Date: 20071207
  Transmission Date: 20080405
  Serious: Yes (Other)
  Sender: FDA-Public Use
  Company Number: 2007PV033815

PATIENT
  Age: 57 Year
  Sex: Female
  Weight: 78.0187 kg

DRUGS (5)
  1. SYMLIN [Suspect]
     Indication: TYPE 1 DIABETES MELLITUS
     Dosage: 60 MCG;BID;SC, 45 MCG;BID;SC, 30 MCG;BID;SC, 15 MCG;BID;SC
     Route: 058
     Dates: start: 20070406, end: 20070401
  2. SYMLIN [Suspect]
     Indication: TYPE 1 DIABETES MELLITUS
     Dosage: 60 MCG;BID;SC, 45 MCG;BID;SC, 30 MCG;BID;SC, 15 MCG;BID;SC
     Route: 058
     Dates: start: 20070401, end: 20070501
  3. SYMLIN [Suspect]
     Indication: TYPE 1 DIABETES MELLITUS
     Dosage: 60 MCG;BID;SC, 45 MCG;BID;SC, 30 MCG;BID;SC, 15 MCG;BID;SC
     Route: 058
     Dates: start: 20070501, end: 20070501
  4. SYMLIN [Suspect]
     Indication: TYPE 1 DIABETES MELLITUS
     Dosage: 60 MCG;BID;SC, 45 MCG;BID;SC, 30 MCG;BID;SC, 15 MCG;BID;SC
     Route: 058
     Dates: start: 20070601, end: 20071001
  5. HUMALOG [Concomitant]

REACTIONS (6)
  - AMNESIA [None]
  - ECONOMIC PROBLEM [None]
  - FIBROMYALGIA [None]
  - HYPOGLYCAEMIA [None]
  - HYPOGLYCAEMIC UNCONSCIOUSNESS [None]
  - WEIGHT INCREASED [None]
